FAERS Safety Report 14291371 (Version 2)
Quarter: 2017Q4

REPORT INFORMATION
  Report Type: Spontaneous
  Country: FR (occurrence: FR)
  Receive Date: 20171215
  Receipt Date: 20171221
  Transmission Date: 20180321
  Serious: Yes (Hospitalization, Other)
  Sender: FDA-Public Use
  Company Number: FR-ASTRAZENECA-2017SF25815

PATIENT
  Age: 73 Year
  Sex: Female

DRUGS (1)
  1. TAGRISSO [Suspect]
     Active Substance: OSIMERTINIB
     Indication: MALIGNANT NEOPLASM OF PLEURA
     Dosage: 80.0MG UNKNOWN
     Route: 048
     Dates: start: 20171113, end: 20171205

REACTIONS (6)
  - Renal impairment [Unknown]
  - Cardiac asthma [Unknown]
  - Weight increased [Recovering/Resolving]
  - Wheezing [Unknown]
  - Cough [Recovering/Resolving]
  - Interstitial lung disease [Recovering/Resolving]

NARRATIVE: CASE EVENT DATE: 20171125
